FAERS Safety Report 18320330 (Version 1)
Quarter: 2020Q3

REPORT INFORMATION
  Report Type: Spontaneous
  Country: US (occurrence: US)
  Receive Date: 20200928
  Receipt Date: 20200928
  Transmission Date: 20201103
  Serious: No
  Sender: FDA-Public Use
  Company Number: US-MYLANLABS-2020M1081600

PATIENT
  Sex: Male
  Weight: 177 kg

DRUGS (1)
  1. FENTANYL TRANSDERMAL SYSTEM [Suspect]
     Active Substance: FENTANYL
     Indication: NEUROPATHY PERIPHERAL
     Dosage: EVERY 3 DAYS
     Route: 062
     Dates: start: 20200910

REACTIONS (2)
  - Product adhesion issue [Unknown]
  - Product use in unapproved indication [Not Recovered/Not Resolved]
